FAERS Safety Report 14511286 (Version 2)
Quarter: 2018Q1

REPORT INFORMATION
  Report Type: Report from Study
  Country: US (occurrence: US)
  Receive Date: 20180209
  Receipt Date: 20180302
  Transmission Date: 20180509
  Serious: Yes (Death, Hospitalization)
  Sender: FDA-Public Use
  Company Number: US-ASTRAZENECA-2018SE16427

PATIENT
  Age: 947 Month
  Sex: Female
  Weight: 77.9 kg

DRUGS (4)
  1. AZD2281 [Suspect]
     Active Substance: OLAPARIB
     Indication: OVARIAN CANCER RECURRENT
     Route: 048
  2. AZD2171 [Suspect]
     Active Substance: CEDIRANIB
     Indication: OVARIAN CANCER RECURRENT
     Route: 048
     Dates: start: 20170411, end: 20170421
  3. AZD2171 [Suspect]
     Active Substance: CEDIRANIB
     Indication: OVARIAN CANCER RECURRENT
     Route: 048
  4. AZD2281 [Suspect]
     Active Substance: OLAPARIB
     Indication: OVARIAN CANCER RECURRENT
     Route: 048
     Dates: start: 20170411, end: 20170421

REACTIONS (3)
  - Sepsis [Fatal]
  - Acute kidney injury [Unknown]
  - Leukaemia [Unknown]

NARRATIVE: CASE EVENT DATE: 20180124
